FAERS Safety Report 21910137 (Version 1)
Quarter: 2023Q1

REPORT INFORMATION
  Report Type: Spontaneous
  Country: US (occurrence: None)
  Receive Date: 20230125
  Receipt Date: 20230125
  Transmission Date: 20230418
  Serious: Yes (Disabling, Other)
  Sender: FDA-Public Use
  Company Number: None

PATIENT
  Age: 36 Year
  Sex: Female
  Weight: 49.5 kg

DRUGS (7)
  1. GABAPENTIN [Suspect]
     Active Substance: GABAPENTIN
     Indication: Depression
     Dosage: OTHER QUANTITY : 3 CAPSULE(S);?FREQUENCY : 3 TIMES A DAY;?
     Route: 048
  2. GABAPENTIN [Concomitant]
     Active Substance: GABAPENTIN
  3. LORAZEPAM [Concomitant]
     Active Substance: LORAZEPAM
  4. ADDERALL [Concomitant]
     Active Substance: AMPHETAMINE ASPARTATE\AMPHETAMINE SULFATE\DEXTROAMPHETAMINE SACCHARATE\DEXTROAMPHETAMINE SULFATE
  5. LO LOESTRIN FE [Concomitant]
     Active Substance: ETHINYL ESTRADIOL\NORETHINDRONE ACETATE
  6. SERTRALINE [Concomitant]
     Active Substance: SERTRALINE HYDROCHLORIDE
  7. VITAMINS [Concomitant]
     Active Substance: VITAMINS

REACTIONS (8)
  - Off label use [None]
  - Drug ineffective [None]
  - Quality of life decreased [None]
  - Fatigue [None]
  - Cognitive disorder [None]
  - Anhedonia [None]
  - Withdrawal syndrome [None]
  - Product dose omission in error [None]

NARRATIVE: CASE EVENT DATE: 20230124
